FAERS Safety Report 19710741 (Version 1)
Quarter: 2021Q3

REPORT INFORMATION
  Report Type: Report from Study
  Country: MX (occurrence: MX)
  Receive Date: 20210816
  Receipt Date: 20210816
  Transmission Date: 20211014
  Serious: Yes (Other)
  Sender: FDA-Public Use
  Company Number: MX-ASTRAZENECA-2021A678962

PATIENT
  Age: 74 Year
  Sex: Female

DRUGS (5)
  1. FOLIC ACID. [Concomitant]
     Active Substance: FOLIC ACID
  2. RUJI [Concomitant]
     Indication: HYPERTENSION
  3. TRAMADOL. [Concomitant]
     Active Substance: TRAMADOL
     Indication: PAIN
     Route: 048
     Dates: start: 2000
  4. FORXIGA [Suspect]
     Active Substance: DAPAGLIFLOZIN
     Indication: DIABETES MELLITUS
     Dosage: 2?3 YEARS AGO
     Route: 048
     Dates: start: 2018
  5. DEFLAZACORT [Concomitant]
     Active Substance: DEFLAZACORT
     Route: 048

REACTIONS (12)
  - Spinal disorder [Unknown]
  - Decreased appetite [Unknown]
  - Musculoskeletal discomfort [Unknown]
  - COVID-19 [Unknown]
  - Dry mouth [Not Recovered/Not Resolved]
  - Hepatitis [Recovered/Resolved]
  - Renal disorder [Recovered/Resolved]
  - Hunger [Unknown]
  - Blood pressure decreased [Unknown]
  - Dehydration [Unknown]
  - Memory impairment [Not Recovered/Not Resolved]
  - Weight decreased [Unknown]

NARRATIVE: CASE EVENT DATE: 2021
